FAERS Safety Report 13370940 (Version 4)
Quarter: 2017Q2

REPORT INFORMATION
  Report Type: Spontaneous
  Country: US (occurrence: US)
  Receive Date: 20170324
  Receipt Date: 20170428
  Transmission Date: 20170830
  Serious: Yes (Hospitalization)
  Sender: FDA-Public Use
  Company Number: US-UNITED THERAPEUTICS-UNT-2017-002569

PATIENT
  Age: 38 Year
  Sex: Female
  Weight: 67.12 kg

DRUGS (6)
  1. REMODULIN [Suspect]
     Active Substance: TREPROSTINIL
     Dosage: 0.134 ?G/KG, CONTINUING
     Route: 041
     Dates: start: 20080804
  2. COUMADIN [Concomitant]
     Active Substance: WARFARIN SODIUM
     Indication: PRODUCT USED FOR UNKNOWN INDICATION
  3. REMODULIN [Suspect]
     Active Substance: TREPROSTINIL
     Dosage: 0.131 ?G/KG, CONTINUING
     Route: 041
  4. OPSUMIT [Concomitant]
     Active Substance: MACITENTAN
     Indication: PRODUCT USED FOR UNKNOWN INDICATION
  5. REMODULIN [Suspect]
     Active Substance: TREPROSTINIL
     Indication: PULMONARY HYPERTENSION
     Dosage: 0.127 ?G/KG, CONTINUING
     Route: 041
     Dates: start: 20080715
  6. REVATIO [Concomitant]
     Active Substance: SILDENAFIL CITRATE
     Indication: PRODUCT USED FOR UNKNOWN INDICATION

REACTIONS (4)
  - Perforated ulcer [Unknown]
  - Generalised oedema [Unknown]
  - Abdominal pain [Unknown]
  - Ascites [Unknown]

NARRATIVE: CASE EVENT DATE: 20170227
